FAERS Safety Report 21421557 (Version 1)
Quarter: 2022Q4

REPORT INFORMATION
  Report Type: Spontaneous
  Country: US (occurrence: None)
  Receive Date: 20221006
  Receipt Date: 20221006
  Transmission Date: 20230112
  Serious: Yes (Other)
  Sender: FDA-Public Use
  Company Number: None

PATIENT
  Age: 86 Year
  Sex: Female

DRUGS (1)
  1. LENALIDOMIDE [Suspect]
     Active Substance: LENALIDOMIDE
     Indication: Plasma cell myeloma
     Dosage: FREQUENCY : DAILY;?
     Route: 048
     Dates: start: 20210407

REACTIONS (5)
  - Abdominal pain [None]
  - Nausea [None]
  - Peripheral swelling [None]
  - Oedema peripheral [None]
  - Product substitution issue [None]

NARRATIVE: CASE EVENT DATE: 20220922
